FAERS Safety Report 12468019 (Version 1)
Quarter: 2016Q2

REPORT INFORMATION
  Report Type: Spontaneous
  Country: US (occurrence: US)
  Receive Date: 20160615
  Receipt Date: 20160615
  Transmission Date: 20160815
  Serious: Yes (Other)
  Sender: FDA-Public Use
  Company Number: US-PFIZER INC-2016266245

PATIENT
  Age: 84 Year
  Sex: Female
  Weight: 79 kg

DRUGS (6)
  1. AVELOX [Concomitant]
     Active Substance: MOXIFLOXACIN HYDROCHLORIDE
     Dosage: 400 MG, 1X/DAY ((7 DAY RX))
     Route: 048
  2. ATROPINE SULFATE. [Concomitant]
     Active Substance: ATROPINE SULFATE
     Dosage: 1 GTT, 2X/DAY (1% 1 GTT BID OS)
     Route: 047
  3. EPINEPHRINE. [Suspect]
     Active Substance: EPINEPHRINE
     Indication: PUPILLARY DISORDER
     Dosage: 1:1000 MPF (AMPS) (0.2ML IN 500ML BSS BAG)
     Route: 047
     Dates: start: 20160414
  4. DUREZOL [Concomitant]
     Active Substance: DIFLUPREDNATE
     Dosage: 1 GTT, UNK (0.05% 1 GTT Q 2H OS)
     Route: 047
  5. VIGAMOX [Concomitant]
     Active Substance: MOXIFLOXACIN HYDROCHLORIDE
     Dosage: 1 GTT, UNK (0.5% 1 GTT Q 2H OS)
     Route: 047
  6. COMBIGAN [Concomitant]
     Active Substance: BRIMONIDINE TARTRATE\TIMOLOL MALEATE
     Dosage: 1 GTT, 2X/DAY (0.2% 1 GTT BID OS)
     Route: 047

REACTIONS (5)
  - Eye pain [Unknown]
  - Endophthalmitis [Not Recovered/Not Resolved]
  - Post procedural infection [Not Recovered/Not Resolved]
  - Visual acuity reduced [Unknown]
  - Product use issue [Not Recovered/Not Resolved]

NARRATIVE: CASE EVENT DATE: 20160414
